FAERS Safety Report 8997073 (Version 1)
Quarter: 2013Q1

REPORT INFORMATION
  Report Type: Report from Study
  Country: US (occurrence: US)
  Receive Date: 20130104
  Receipt Date: 20130104
  Transmission Date: 20140127
  Serious: Yes (Death, Other)
  Sender: FDA-Public Use
  Company Number: US-ROCHE-1028358

PATIENT
  Sex: 0

DRUGS (3)
  1. PEG-INTERFERON ALFA 2A [Suspect]
     Indication: CHRONIC HEPATITIS C
     Route: 058
  2. RIBAVIRIN [Suspect]
     Indication: CHRONIC HEPATITIS C
     Dosage: WEIGHT-BASED DOSING OF 1000-1200 MG/D
     Route: 065
  3. BLINDED BOCEPREVIR [Suspect]
     Indication: CHRONIC HEPATITIS C
     Dosage: TO BE TAKEN WITH FOOD AND WITH AN INTERVAL OF 7-9 HOURS BETWEEN DOSES
     Route: 048

REACTIONS (9)
  - Cardiac failure [Fatal]
  - Bronchopneumonia [Fatal]
  - Anaemia [Unknown]
  - Neutropenia [Unknown]
  - Influenza [Unknown]
  - Staphylococcal infection [Unknown]
  - Pneumonia chlamydial [Unknown]
  - Pneumonia mycoplasmal [Unknown]
  - Haemophilus infection [Unknown]
